FAERS Safety Report 5220082-7 (Version None)
Quarter: 2006Q4

REPORT INFORMATION
  Report Type: 
  Country: None (occurrence: None)
  Receive Date: 20061121
  Receipt Date: 20060920
  Transmission Date: 20070319
  Serious: No
  Sender: FDA-Public Use
  Company Number: TPA2006A01630

PATIENT
  Age: 63 Year
  Sex: Female
  Weight: 46.2669 kg

DRUGS (10)
  1. ROZEREM [Suspect]
     Indication: INSOMNIA
     Dosage: 8 MG, QHS, PER ORAL
     Route: 048
     Dates: start: 20060817, end: 20060911
  2. ESTROGEN/PROGESTIN PATCH (ESTROGENS, COMBINATIONS WITH OTHER DRUGS) (P [Concomitant]
  3. OMERPRAZOLE (OMEPRAZOLE) [Concomitant]
  4. BONIVA (IBANDRONATE SODIUM) [Concomitant]
  5. ZETIA [Concomitant]
  6. ARTHROTEC [Concomitant]
  7. VITAMIN E [Concomitant]
  8. VITAMIN D [Concomitant]
  9. MULTIVITAMIN [Concomitant]
  10. CALCIUM (CALCIUM) [Concomitant]

REACTIONS (2)
  - DRUG INEFFECTIVE [None]
  - MIDDLE INSOMNIA [None]
